FAERS Safety Report 8476725-8 (Version None)
Quarter: 2012Q2

REPORT INFORMATION
  Report Type: 
  Country: None (occurrence: None)
  Receive Date: 20120628
  Receipt Date: 20120622
  Transmission Date: 20120825
  Serious: Yes (Other)
  Sender: FDA-Public Use
  Company Number: GB-ABBOTT-12P-167-0949476-00

PATIENT
  Age: 21 Year
  Sex: Female

DRUGS (1)
  1. VALPROIC ACID [Suspect]
     Indication: MOOD SWINGS
     Dosage: DAILY

REACTIONS (3)
  - MELAENA [None]
  - HAEMATOCHEZIA [None]
  - EPISTAXIS [None]
